FAERS Safety Report 6029581-1 (Version None)
Quarter: 2009Q1

REPORT INFORMATION
  Report Type: 
  Country: None (occurrence: None)
  Receive Date: 20090107
  Receipt Date: 20081229
  Transmission Date: 20090719
  Serious: Yes (Other)
  Sender: FDA-Public Use
  Company Number: DE-ELI_LILLY_AND_COMPANY-DE200812005871

PATIENT
  Age: 57 Year
  Weight: 67 kg

DRUGS (1)
  1. HUMALOG [Suspect]
     Dosage: UNK, UNKNOWN
     Route: 065

REACTIONS (2)
  - BLOOD GLUCOSE INCREASED [None]
  - KETOACIDOSIS [None]
